FAERS Safety Report 9762830 (Version 1)
Quarter: 2013Q4

REPORT INFORMATION
  Report Type: Spontaneous
  Country: FR (occurrence: None)
  Receive Date: 20131213
  Receipt Date: 20131213
  Transmission Date: 20140711
  Serious: Yes (Hospitalization)
  Sender: FDA-Public Use
  Company Number: LEVE20130010

PATIENT
  Age: 84 Year
  Sex: Female

DRUGS (2)
  1. LEVETIRACETAM [Suspect]
     Indication: EPILEPSY
     Route: 048
  2. SODIUM VALPROATE (VALPROATE SODIUM) (UNKNOWN) (VALPROATE SODIUM) [Concomitant]

REACTIONS (2)
  - Toxic encephalopathy [None]
  - Metabolic encephalopathy [None]
